FAERS Safety Report 25754704 (Version 1)
Quarter: 2025Q3

REPORT INFORMATION
  Report Type: Spontaneous
  Country: CN (occurrence: None)
  Receive Date: 20250903
  Receipt Date: 20250903
  Transmission Date: 20251021
  Serious: Yes (Hospitalization)
  Sender: INFORLIFE
  Company Number: CN-INFO-20250211

PATIENT
  Age: 67 Year
  Sex: Female

DRUGS (3)
  1. AMOXICILLIN [Suspect]
     Active Substance: AMOXICILLIN
     Indication: Infection
  2. LEVOFLOXACIN [Suspect]
     Active Substance: LEVOFLOXACIN
     Indication: Infection
  3. CEFACLOR [Suspect]
     Active Substance: CEFACLOR
     Indication: Infection

REACTIONS (1)
  - Acinetobacter infection [Recovered/Resolved]
